FAERS Safety Report 16594718 (Version 2)
Quarter: 2022Q3

REPORT INFORMATION
  Report Type: Spontaneous
  Country: US (occurrence: US)
  Receive Date: 20190718
  Receipt Date: 20220817
  Transmission Date: 20221027
  Serious: Yes (Disabling)
  Sender: FDA-Public Use
  Company Number: US-TEVA-2019-US-1078384

PATIENT
  Age: 61 Year
  Sex: Female
  Weight: 86.18 kg

DRUGS (3)
  1. DOCETAXEL [Suspect]
     Active Substance: DOCETAXEL
     Indication: Breast cancer female
     Dosage: NUMBER OF CYCLES: 04, EVERY THREE WEEKS
     Route: 065
     Dates: start: 20130131, end: 20130416
  2. DOCETAXEL [Suspect]
     Active Substance: DOCETAXEL
     Indication: Breast cancer female
     Dosage: NUMBER OF CYCLES: 04, EVERY THREE WEEKS
     Route: 065
     Dates: start: 20130131, end: 20130416
  3. CYCLOPHOSPHAMIDE [Concomitant]
     Active Substance: CYCLOPHOSPHAMIDE
     Indication: Breast cancer female
     Route: 065

REACTIONS (1)
  - Alopecia [Not Recovered/Not Resolved]
